FAERS Safety Report 13304139 (Version 2)
Quarter: 2019Q1

REPORT INFORMATION
  Report Type: Spontaneous
  Country: IE (occurrence: IE)
  Receive Date: 20170308
  Receipt Date: 20190217
  Transmission Date: 20190417
  Serious: Yes (Other)
  Sender: FDA-Public Use
  Company Number: IE-JNJFOC-20170203136

PATIENT
  Age: 5 Decade
  Sex: Male

DRUGS (2)
  1. VENLAFEX XL [Suspect]
     Active Substance: VENLAFAXINE HYDROCHLORIDE
     Indication: DEPRESSION
     Dosage: 2 YEARS AGO
     Route: 065
     Dates: end: 2017
  2. SUDAFED [Suspect]
     Active Substance: PSEUDOEPHEDRINE HYDROCHLORIDE
     Indication: PRODUCT USED FOR UNKNOWN INDICATION
     Dosage: 3 TABLETS TAKEN (60 MG)
     Route: 065
     Dates: start: 20170128, end: 20170129

REACTIONS (4)
  - Palpitations [Recovered/Resolved]
  - Insomnia [Unknown]
  - Rash erythematous [Recovering/Resolving]
  - Rash pruritic [Recovering/Resolving]

NARRATIVE: CASE EVENT DATE: 20170129
